FAERS Safety Report 20983113 (Version 4)
Quarter: 2025Q3

REPORT INFORMATION
  Report Type: Spontaneous
  Country: US (occurrence: US)
  Receive Date: 20220620
  Receipt Date: 20250710
  Transmission Date: 20251020
  Serious: Yes (Death, Other)
  Sender: JAZZ
  Company Number: US-JAZZ-2022-US-020976

PATIENT
  Age: 58 Year
  Sex: Male

DRUGS (10)
  1. EPIDIOLEX [Suspect]
     Active Substance: CANNABIDIOL
     Indication: Partial seizures
     Dosage: 6.9 MILLILITER, BID
     Route: 048
     Dates: start: 20200220
  2. EPIDIOLEX [Suspect]
     Active Substance: CANNABIDIOL
     Indication: Epilepsy
  3. EPIDIOLEX [Suspect]
     Active Substance: CANNABIDIOL
     Indication: Simple partial seizures
  4. VIMPAT [Concomitant]
     Active Substance: LACOSAMIDE
     Indication: Seizure
     Dosage: 200 MILLIGRAM, BID
     Route: 048
  5. LEVETIRACETAM [Concomitant]
     Active Substance: LEVETIRACETAM
     Indication: Product used for unknown indication
     Dosage: 1500
  6. MIDODRINE [Concomitant]
     Active Substance: MIDODRINE
     Indication: Product used for unknown indication
     Dosage: 5 MILLIGRAM, TID
  7. QUETIAPINE [Concomitant]
     Active Substance: QUETIAPINE
     Indication: Product used for unknown indication
     Dosage: 25 MILLIGRAM, BID
  8. SERTRALINE [Concomitant]
     Active Substance: SERTRALINE HYDROCHLORIDE
     Indication: Product used for unknown indication
  9. FOLVITE [Concomitant]
     Active Substance: FOLIC ACID
     Indication: Product used for unknown indication
  10. VITAMIN D3 [Concomitant]
     Active Substance: CHOLECALCIFEROL
     Indication: Product used for unknown indication

REACTIONS (2)
  - Death [Fatal]
  - Off label use [Unknown]

NARRATIVE: CASE EVENT DATE: 20200220
